FAERS Safety Report 18152921 (Version 2)
Quarter: 2020Q3

REPORT INFORMATION
  Report Type: Spontaneous
  Country: US (occurrence: US)
  Receive Date: 20200814
  Receipt Date: 20200910
  Transmission Date: 20201103
  Serious: No
  Sender: FDA-Public Use
  Company Number: US-AMAG PHARMACEUTICALS, INC.-AMAG202002654

PATIENT
  Age: 32 Year
  Sex: Female

DRUGS (6)
  1. PRENATAL VITAMINS [Concomitant]
     Active Substance: VITAMINS
     Indication: PREGNANCY
     Route: 048
     Dates: start: 20200507
  2. ASPIRIN. [Concomitant]
     Active Substance: ASPIRIN
     Indication: GESTATIONAL HYPERTENSION
     Route: 048
     Dates: start: 20200507
  3. LEVOTHYROXINE. [Concomitant]
     Active Substance: LEVOTHYROXINE
     Indication: HYPOTHYROIDISM
     Route: 048
     Dates: start: 20200507
  4. METROGEL [Concomitant]
     Active Substance: METRONIDAZOLE
     Indication: BACTERIAL VAGINOSIS
     Dosage: 0.75 MG INSERT 1 APPLICATION FOR 5 NIGHTS
     Route: 067
  5. MAKENA [Suspect]
     Active Substance: HYDROXYPROGESTERONE CAPROATE
     Indication: PREMATURE LABOUR
     Dosage: 250MG/ML, WEEKLY
     Route: 058
     Dates: start: 20200610, end: 202007
  6. METROGEL [Concomitant]
     Active Substance: METRONIDAZOLE
     Indication: BACTERIAL VAGINOSIS
     Dosage: INSERT 1 APPLICATION FOR 5 NIGHTS

REACTIONS (1)
  - Rash pruritic [Recovered/Resolved]

NARRATIVE: CASE EVENT DATE: 20200717
